FAERS Safety Report 8810272 (Version 1)
Quarter: 2012Q4

REPORT INFORMATION
  Report Type: 
  Country: US (occurrence: US)
  Receive Date: 20120926
  Receipt Date: 20120926
  Transmission Date: 20130627
  Serious: No
  Sender: FDA-Public Use
  Company Number: US-009507513-1209USA009158

PATIENT
  Sex: Female

DRUGS (2)
  1. SAPHRIS [Suspect]
     Route: 060
  2. MOTRIN [Concomitant]

REACTIONS (2)
  - High density lipoprotein decreased [Unknown]
  - Blood glucose increased [Unknown]
